FAERS Safety Report 10405649 (Version 1)
Quarter: 2014Q3

REPORT INFORMATION
  Report Type: Not Available
  Country: US (occurrence: US)
  Receive Date: 20140825
  Receipt Date: 20140825
  Transmission Date: 20150326
  Serious: No
  Sender: FDA-Public Use
  Company Number: US-LUPIN PHARMACEUTICALS INC.-E2B_00002269

PATIENT
  Sex: Female
  Weight: 52.21 kg

DRUGS (5)
  1. ESCITALOPRAM TABLETS USP 5MG [Suspect]
     Active Substance: ESCITALOPRAM OXALATE
     Indication: ANXIETY
     Dates: start: 20140614, end: 20140618
  2. KLONOPIN [Concomitant]
     Active Substance: CLONAZEPAM
     Indication: ANXIETY
     Route: 065
  3. ESCITALOPRAM TABLETS USP 5MG [Suspect]
     Active Substance: ESCITALOPRAM OXALATE
     Dates: start: 20140629
  4. VYVANSE [Concomitant]
     Active Substance: LISDEXAMFETAMINE DIMESYLATE
     Indication: ANXIETY
     Route: 065
  5. VYVANSE [Concomitant]
     Active Substance: LISDEXAMFETAMINE DIMESYLATE
     Indication: ATTENTION DEFICIT/HYPERACTIVITY DISORDER

REACTIONS (2)
  - Arthropathy [Not Recovered/Not Resolved]
  - Deformity [Not Recovered/Not Resolved]
